FAERS Safety Report 6744815-3 (Version None)
Quarter: 2010Q2

REPORT INFORMATION
  Report Type: 
  Country: None (occurrence: None)
  Receive Date: 20100527
  Receipt Date: 20100406
  Transmission Date: 20101027
  Serious: No
  Sender: FDA-Public Use
  Company Number: US-BRISTOL-MYERS SQUIBB COMPANY-14995930

PATIENT
  Age: 44 Year
  Sex: Male

DRUGS (5)
  1. ONGLYZA [Suspect]
     Indication: DIABETES MELLITUS
     Route: 048
     Dates: start: 20091101
  2. METFORMIN HCL [Suspect]
     Indication: DIABETES MELLITUS
     Route: 048
     Dates: start: 20091223
  3. NORVASC [Suspect]
     Indication: HYPERTENSION
     Dosage: 5MG(07JUL09-NOV09).
     Route: 048
     Dates: start: 20091101
  4. METAGLIP [Concomitant]
  5. AVALIDE [Concomitant]
     Indication: HYPERTENSION
     Dosage: 1DF=300/12.5(UNITS NOT SPECIFIED).
     Route: 048

REACTIONS (1)
  - OEDEMA PERIPHERAL [None]
